FAERS Safety Report 7817030-X (Version None)
Quarter: 2011Q4

REPORT INFORMATION
  Report Type: 
  Country: None (occurrence: None)
  Receive Date: 20111014
  Receipt Date: 20111014
  Transmission Date: 20120403
  Serious: Yes (Disabling)
  Sender: FDA-Public Use
  Company Number: None

PATIENT
  Sex: Female
  Weight: 70.3075 kg

DRUGS (1)
  1. METOLAZONE [Suspect]
     Indication: FLUID RETENTION
     Dosage: 1 PILL
     Dates: start: 20100101

REACTIONS (11)
  - GAIT DISTURBANCE [None]
  - SPINAL FRACTURE [None]
  - ABDOMINAL PAIN [None]
  - FALL [None]
  - CONSTIPATION [None]
  - MUSCLE ATROPHY [None]
  - SCOLIOSIS [None]
  - BACK PAIN [None]
  - ACTIVITIES OF DAILY LIVING IMPAIRED [None]
  - ASTHENIA [None]
  - RENAL IMPAIRMENT [None]
